FAERS Safety Report 4345865-7 (Version None)
Quarter: 2004Q2

REPORT INFORMATION
  Report Type: 
  Country: None (occurrence: None)
  Receive Date: 20040421
  Receipt Date: 20040408
  Transmission Date: 20050107
  Serious: Yes (Life-Threatening, Hospitalization, Other)
  Sender: FDA-Public Use
  Company Number: 2004024294

PATIENT
  Age: 76 Year
  Sex: Female
  Weight: 85 kg

DRUGS (10)
  1. AMLODIPINE [Suspect]
     Indication: ILL-DEFINED DISORDER
     Dosage: 5 MG (DAILY), ORAL
     Route: 048
  2. VALSARTAN (VALSARTAN) [Suspect]
     Indication: ILL-DEFINED DISORDER
     Dosage: 160 MG (DAILY), ORAL
     Route: 048
  3. KETEK [Suspect]
     Indication: BRONCHOSPASM
     Dosage: ORAL
     Route: 048
  4. ALLOPURINOL [Suspect]
     Indication: ILL-DEFINED DISORDER
     Dosage: 200 MG (DAILY)
  5. ACEBUTOLOL HCL [Suspect]
     Indication: ILL-DEFINED DISORDER
     Dosage: 800 MG (DAILY), ORAL
     Route: 048
  6. CORTICOSTEROID NOS [Concomitant]
  7. FUROSEMIDE [Concomitant]
  8. METFORMIN HYDROCHLORIDE [Concomitant]
  9. GLICLAZIDE [Concomitant]
  10. TERBUTALINE SULFATE [Concomitant]

REACTIONS (12)
  - ACUTE RESPIRATORY DISTRESS SYNDROME [None]
  - BRONCHITIS [None]
  - DISTURBANCE IN ATTENTION [None]
  - ENTEROBACTER INFECTION [None]
  - HYPERKALAEMIA [None]
  - HYPOGLYCAEMIA [None]
  - LUNG INFECTION [None]
  - MALNUTRITION [None]
  - PSEUDOMONAS INFECTION [None]
  - RENAL FAILURE ACUTE [None]
  - SHOCK [None]
  - STAPHYLOCOCCAL INFECTION [None]
